FAERS Safety Report 7404047-2 (Version None)
Quarter: 2011Q2

REPORT INFORMATION
  Report Type: 
  Country: None (occurrence: None)
  Receive Date: 20110408
  Receipt Date: 20110321
  Transmission Date: 20111010
  Serious: Yes (Other)
  Sender: FDA-Public Use
  Company Number: US-BAYER-2010-002673

PATIENT
  Sex: Female
  Weight: 107.48 kg

DRUGS (4)
  1. ACE INHIBITOR NOS [Concomitant]
  2. YASMIN [Suspect]
     Dosage: UNK, QD
     Route: 048
     Dates: start: 20080401, end: 20080501
  3. YAZ [Suspect]
     Indication: PRODUCT USED FOR UNKNOWN INDICATION
  4. YASMIN [Suspect]
     Indication: PRODUCT USED FOR UNKNOWN INDICATION
     Dosage: UNK UNK, QD
     Route: 048
     Dates: start: 20060101

REACTIONS (4)
  - HEADACHE [None]
  - CEREBROVASCULAR ACCIDENT [None]
  - PULMONARY EMBOLISM [None]
  - THROMBOSIS [None]
